FAERS Safety Report 4700458-4 (Version None)
Quarter: 2005Q2

REPORT INFORMATION
  Report Type: 
  Country: None (occurrence: None)
  Receive Date: 20050624
  Receipt Date: 20050620
  Transmission Date: 20051028
  Serious: Yes (Hospitalization)
  Sender: FDA-Public Use
  Company Number: ITWYE750316JUN05

PATIENT
  Age: 49 Year
  Sex: Male

DRUGS (1)
  1. GEMTUZUMAB OZOGAMICIN (GEMTUZUMAB OZOGAMICIN, INJECTION) [Suspect]
     Indication: ACUTE PROMYELOCYTIC LEUKAEMIA
     Dosage: 6 MG/M^2 1X PER 1 DAY, INTRAVANEOUS
     Route: 042
     Dates: start: 20050530, end: 20050630

REACTIONS (2)
  - FEBRILE NEUTROPENIA [None]
  - PHLEBITIS [None]
